FAERS Safety Report 6700640-0 (Version None)
Quarter: 2010Q2

REPORT INFORMATION
  Report Type: 
  Country: None (occurrence: None)
  Receive Date: 20100426
  Receipt Date: 20100412
  Transmission Date: 20101027
  Serious: Yes (Life-Threatening, Hospitalization)
  Sender: FDA-Public Use
  Company Number: 2010-00424

PATIENT
  Age: 61 Year
  Sex: Female

DRUGS (18)
  1. RAMIPRIL [Suspect]
     Indication: DRUG USE FOR UNKNOWN INDICATION
     Dosage: 10 MG (1 IN 1 D), ORAL
     Route: 048
     Dates: end: 20100323
  2. TRIMETHOPRIM [Suspect]
     Indication: URINARY TRACT INFECTION
     Dosage: 200 MG (2 IN 1 D), ORAL
     Route: 048
     Dates: start: 20100317, end: 20100320
  3. AMLODIPINE [Concomitant]
  4. ASPIRIN [Concomitant]
  5. ATORVASTATIN [Concomitant]
  6. CITALOPRAM [Concomitant]
  7. CLONAZEPAM [Concomitant]
  8. CODEINE PHOSPHATE+ PARACETAMOL (CO-CODAMOL) [Concomitant]
  9. ALPHA AMYLASE + AMYLASE+ LIPASE+ PANCREATIN+ PROTEASE (CREON) [Concomitant]
  10. DICLOFENAC [Concomitant]
  11. DIHYDROCODEINE BITARTRATE INJ [Concomitant]
  12. DOXAZOSIN [Concomitant]
  13. IRON (FERROUS FUMARATE) [Concomitant]
  14. FLUTICASONE PROPIONATE [Concomitant]
  15. METFORMIN HCL [Concomitant]
  16. INSULIN PORCINE HIGHLY PURIFIED (MIXTARD) [Concomitant]
  17. OMEPRAZOLE [Concomitant]
  18. SALBUTAMOL + SALBUTAMOL BASE+ SALBUTAMOL SULPHATE+ SALBUTAMOL SULPHATE [Concomitant]

REACTIONS (2)
  - DRUG INTERACTION [None]
  - HYPERKALAEMIA [None]
